FAERS Safety Report 16954428 (Version 2)
Quarter: 2019Q4

REPORT INFORMATION
  Report Type: Spontaneous
  Country: AU (occurrence: AU)
  Receive Date: 20191023
  Receipt Date: 20191105
  Transmission Date: 20200122
  Serious: Yes (Other)
  Sender: FDA-Public Use
  Company Number: NVSC2019AU008489

PATIENT
  Age: 59 Year
  Sex: Female

DRUGS (2)
  1. QUETIAPINE SANDOZ [Suspect]
     Active Substance: QUETIAPINE
     Dosage: 12.5 MG, QD (MANE)
     Route: 065
  2. QUETIAPINE SANDOZ [Suspect]
     Active Substance: QUETIAPINE
     Indication: PRODUCT USED FOR UNKNOWN INDICATION
     Dosage: 75 MG, BID (6 MONTHS AGO)
     Route: 065

REACTIONS (7)
  - Gastrointestinal disorder [Recovered/Resolved]
  - Somnolence [Recovered/Resolved]
  - Nausea [Recovered/Resolved]
  - Dyspnoea [Recovered/Resolved]
  - Tension headache [Recovered/Resolved]
  - Choking [Recovered/Resolved]
  - Vitamin D decreased [Recovered/Resolved]
